FAERS Safety Report 9023508 (Version 1)
Quarter: 2013Q1

REPORT INFORMATION
  Report Type: Spontaneous
  Country: US (occurrence: US)
  Receive Date: 20130121
  Receipt Date: 20130121
  Transmission Date: 20140127
  Serious: No
  Sender: FDA-Public Use
  Company Number: US-009507513-1301USA005704

PATIENT
  Age: 65 Year
  Sex: Male

DRUGS (2)
  1. JANUMET XR [Suspect]
     Indication: TYPE 2 DIABETES MELLITUS
     Dosage: 50 MG/1000 MG, QD
     Route: 048
  2. JANUMET XR [Suspect]
     Dosage: 50 MG/1000 MG,EACH 36 HOURS
     Route: 048

REACTIONS (1)
  - Fatigue [Not Recovered/Not Resolved]
